FAERS Safety Report 21654476 (Version 2)
Quarter: 2023Q2

REPORT INFORMATION
  Report Type: Report from Study
  Country: US (occurrence: US)
  Receive Date: 20221129
  Receipt Date: 20230417
  Transmission Date: 20230722
  Serious: No
  Sender: FDA-Public Use
  Company Number: US-ABBVIE-4175928

PATIENT
  Age: 61 Year
  Sex: Male

DRUGS (1)
  1. RINVOQ [Suspect]
     Active Substance: UPADACITINIB
     Indication: Product used for unknown indication
     Route: 048
     Dates: start: 202208

REACTIONS (4)
  - Influenza [Recovering/Resolving]
  - Bronchitis [Recovered/Resolved]
  - Therapeutic response unexpected [Recovered/Resolved]
  - Pre-existing condition improved [Recovered/Resolved]

NARRATIVE: CASE EVENT DATE: 20221001
